FAERS Safety Report 24652732 (Version 1)
Quarter: 2024Q4

REPORT INFORMATION
  Report Type: Spontaneous
  Country: US (occurrence: US)
  Receive Date: 20241122
  Receipt Date: 20241122
  Transmission Date: 20250115
  Serious: No
  Sender: PL DEVELOPMENTS
  Company Number: US-P+L Developments of Newyork Corporation-2165674

PATIENT

DRUGS (2)
  1. DOCOSANOL [Suspect]
     Active Substance: DOCOSANOL
     Indication: Toothache
  2. DOCOSANOL [Suspect]
     Active Substance: DOCOSANOL
     Indication: Oral herpes

REACTIONS (2)
  - Product use in unapproved indication [Unknown]
  - Drug effective for unapproved indication [Unknown]
